FAERS Safety Report 6344784-4 (Version None)
Quarter: 2009Q3

REPORT INFORMATION
  Report Type: 
  Country: None (occurrence: None)
  Receive Date: 20090904
  Receipt Date: 20090819
  Transmission Date: 20100115
  Serious: Yes (Hospitalization, Other)
  Sender: FDA-Public Use
  Company Number: 2009S1000399

PATIENT
  Age: 71 Year
  Sex: Female
  Weight: 79.8331 kg

DRUGS (7)
  1. PHOSPHOSODA FLAVOR NOT SPECIFIED [Suspect]
     Indication: COLONOSCOPY
     Dosage: 90 ML; TOTAL; PO
     Route: 048
     Dates: start: 20060202, end: 20060203
  2. LISINOPRIL AND HYDROCHLOROTHIAZIDE [Concomitant]
  3. MULTI-VITAMIN [Concomitant]
  4. LOVASTATIN [Concomitant]
  5. PREVACID [Concomitant]
  6. LORAZEPAM [Concomitant]
  7. CLACIUM D [Concomitant]

REACTIONS (3)
  - JOINT SWELLING [None]
  - RENAL FAILURE ACUTE [None]
  - RENAL FAILURE CHRONIC [None]
